FAERS Safety Report 12504287 (Version 3)
Quarter: 2016Q3

REPORT INFORMATION
  Report Type: Spontaneous
  Country: US (occurrence: US)
  Receive Date: 20160628
  Receipt Date: 20160920
  Transmission Date: 20161109
  Serious: Yes (Hospitalization)
  Sender: FDA-Public Use
  Company Number: US-PFIZER INC-2016317374

PATIENT
  Age: 40 Year
  Sex: Male
  Weight: 143 kg

DRUGS (6)
  1. VISTARIL [Concomitant]
     Active Substance: HYDROXYZINE PAMOATE
     Dosage: 50 MG, 3X/DAY
  2. ZIPRASIDONE HCL [Suspect]
     Active Substance: ZIPRASIDONE HYDROCHLORIDE
     Indication: BIPOLAR DISORDER
     Dosage: 20 MG, 4X/DAY(TAKE WITH FOOD )
     Route: 048
     Dates: start: 2016, end: 2016
  3. PRINIVIL [Concomitant]
     Active Substance: LISINOPRIL
     Indication: HYPERTENSION
     Dosage: 40 MG, 3X/DAY
  4. ZIPRASIDONE HCL [Suspect]
     Active Substance: ZIPRASIDONE HYDROCHLORIDE
     Dosage: 20 MG, 4X/DAY(TAKE WITH FOOD )
     Route: 048
     Dates: start: 2016
  5. TRILEPTAL [Concomitant]
     Active Substance: OXCARBAZEPINE
     Dosage: 300 MG, 2X/DAY
  6. ZOLOFT [Concomitant]
     Active Substance: SERTRALINE HYDROCHLORIDE
     Dosage: 100 MG, 1X/DAY

REACTIONS (3)
  - Drug ineffective [Unknown]
  - Nervous system disorder [Unknown]
  - Depression [Unknown]

NARRATIVE: CASE EVENT DATE: 2016
